FAERS Safety Report 8195863-0 (Version None)
Quarter: 2012Q1

REPORT INFORMATION
  Report Type: 
  Country: None (occurrence: None)
  Receive Date: 20120308
  Receipt Date: 20120227
  Transmission Date: 20120608
  Serious: Yes (Other)
  Sender: FDA-Public Use
  Company Number: US-ALLERGAN-1202740US

PATIENT
  Age: 51 Year
  Sex: Female

DRUGS (2)
  1. XOPENEX [Concomitant]
     Indication: ASTHMA
     Dosage: BREATHING MACHINE
     Route: 055
     Dates: start: 20120201, end: 20120207
  2. BOTULINUM TOXIN TYPE A [Suspect]
     Indication: MIGRAINE
     Dosage: 100 UNITS, SINGLE
     Route: 030
     Dates: start: 20120102, end: 20120102

REACTIONS (8)
  - ASTHMA [None]
  - DYSSTASIA [None]
  - DRUG HYPERSENSITIVITY [None]
  - BEDRIDDEN [None]
  - PAIN IN EXTREMITY [None]
  - DYSPNOEA [None]
  - MUSCULAR WEAKNESS [None]
  - ABASIA [None]
